FAERS Safety Report 24912305 (Version 2)
Quarter: 2025Q1

REPORT INFORMATION
  Report Type: Spontaneous
  Country: US (occurrence: US)
  Receive Date: 20250131
  Receipt Date: 20250210
  Transmission Date: 20250409
  Serious: No
  Sender: SANOFI AVENTIS
  Company Number: US-SA-2025SA030054

PATIENT
  Age: 65 Year
  Sex: Female

DRUGS (1)
  1. DUPIXENT [Suspect]
     Active Substance: DUPILUMAB
     Indication: Chronic obstructive pulmonary disease
     Dosage: 300 MG, QOW
     Route: 058
     Dates: start: 202410

REACTIONS (10)
  - Asthma [Unknown]
  - Alopecia [Unknown]
  - Condition aggravated [Unknown]
  - Ocular hyperaemia [Unknown]
  - Condition aggravated [Unknown]
  - Dry eye [Unknown]
  - Condition aggravated [Unknown]
  - Eye pruritus [Unknown]
  - Condition aggravated [Unknown]
  - Injection site pain [Recovered/Resolved]

NARRATIVE: CASE EVENT DATE: 20250105
